FAERS Safety Report 10409252 (Version 3)
Quarter: 2014Q4

REPORT INFORMATION
  Report Type: Spontaneous
  Country: US (occurrence: US)
  Receive Date: 20140826
  Receipt Date: 20141119
  Transmission Date: 20150528
  Serious: Yes (Hospitalization, Other)
  Sender: FDA-Public Use
  Company Number: US-JNJFOC-20140818047

PATIENT
  Age: 52 Year
  Sex: Female

DRUGS (5)
  1. TYLENOL EXTRA STRENGTH [Suspect]
     Active Substance: ACETAMINOPHEN
     Indication: ABDOMINAL PAIN UPPER
     Dosage: 2 TABLETS EVERY FEW HOURS AS DIRECTED
     Route: 048
     Dates: start: 200507, end: 200508
  2. HERBAL MEDICINE [Concomitant]
     Indication: ABDOMINAL PAIN UPPER
     Route: 065
     Dates: start: 200507
  3. MULTIVITAMINS [Concomitant]
     Active Substance: VITAMINS
     Indication: PRODUCT USED FOR UNKNOWN INDICATION
     Route: 065
  4. COLON CLEANSER [Concomitant]
     Indication: PRODUCT USED FOR UNKNOWN INDICATION
     Route: 065
  5. XALATAN [Concomitant]
     Active Substance: LATANOPROST
     Indication: GLAUCOMA
     Route: 065
     Dates: start: 2005

REACTIONS (8)
  - Metabolic encephalopathy [Unknown]
  - Hepatitis [Unknown]
  - Dehydration [Unknown]
  - Anaemia [Unknown]
  - Toxicity to various agents [Unknown]
  - Acute hepatic failure [Unknown]
  - Weight decreased [Unknown]
  - Respiratory failure [Unknown]

NARRATIVE: CASE EVENT DATE: 20050728
